FAERS Safety Report 9991515 (Version 2)
Quarter: 2014Q1

REPORT INFORMATION
  Report Type: Spontaneous
  Country: US (occurrence: US)
  Receive Date: 20140310
  Receipt Date: 20140313
  Transmission Date: 20141002
  Serious: Yes (Death, Hospitalization)
  Sender: FDA-Public Use
  Company Number: US-B.I. PHARMACEUTICALS,INC./RIDGEFIELD-2014-BI-10114BP

PATIENT
  Age: 83 Year
  Sex: Female

DRUGS (5)
  1. PRADAXA [Suspect]
     Indication: ATRIAL FIBRILLATION
     Dosage: 300 MG
     Route: 048
     Dates: start: 2011
  2. UNSPECIFIED ANTI DEPRESSION [Concomitant]
     Indication: DEPRESSION
     Route: 065
  3. UNSPECIFIED THYROID MEDICATION [Concomitant]
     Indication: HYPOTHYROIDISM
     Route: 065
  4. UNSPECIFIED ANTI HYPERTENSION [Concomitant]
     Indication: HYPERTENSION
     Route: 065
  5. UNSPECIFIED MEDICATION FOR HYPERCHOLESTEROLEMIA [Concomitant]
     Indication: HYPERCHOLESTEROLAEMIA
     Route: 065

REACTIONS (1)
  - Cerebral haemorrhage [Fatal]
